FAERS Safety Report 5334547-0 (Version None)
Quarter: 2007Q2

REPORT INFORMATION
  Report Type: 
  Country: None (occurrence: None)
  Receive Date: 20070525
  Receipt Date: 20070515
  Transmission Date: 20071010
  Serious: Yes (Death, Other)
  Sender: FDA-Public Use
  Company Number: US-AVENTIS-200711700US

PATIENT
  Sex: Female

DRUGS (4)
  1. ARAVA [Suspect]
     Dosage: DOSE: UNK
  2. ARAVA [Suspect]
     Dosage: DOSE: UNK
     Dates: start: 20041201
  3. REMICADE [Suspect]
     Dosage: DOSE: UNK
  4. REMICADE [Suspect]
     Dosage: DOSE: UNK
     Dates: start: 20041201

REACTIONS (3)
  - DEATH [None]
  - ILL-DEFINED DISORDER [None]
  - TUBERCULOSIS SKIN TEST POSITIVE [None]
